FAERS Safety Report 4337979-2 (Version None)
Quarter: 2004Q2

REPORT INFORMATION
  Report Type: 
  Country: None (occurrence: None)
  Receive Date: 20040407
  Receipt Date: 20040326
  Transmission Date: 20050107
  Serious: Yes (Other)
  Sender: FDA-Public Use
  Company Number: CA-JNJFOC-20040104526

PATIENT
  Age: 57 Year
  Sex: Female
  Weight: 53.978 kg

DRUGS (16)
  1. REMICADE [Suspect]
     Indication: RHEUMATOID ARTHRITIS
     Dosage: 200 MG, INTRAVENOUS
     Route: 042
     Dates: start: 20030429, end: 20030429
  2. REMICADE [Suspect]
     Indication: RHEUMATOID ARTHRITIS
     Dosage: 200 MG, INTRAVENOUS
     Route: 042
     Dates: start: 20030513, end: 20030513
  3. REMICADE [Suspect]
     Indication: RHEUMATOID ARTHRITIS
     Dosage: 200 MG, INTRAVENOUS
     Route: 042
     Dates: start: 20030610, end: 20030610
  4. REMICADE [Suspect]
     Indication: RHEUMATOID ARTHRITIS
     Dosage: 200 MG, INTRAVENOUS
     Route: 042
     Dates: start: 20030806, end: 20030806
  5. REMICADE [Suspect]
     Indication: RHEUMATOID ARTHRITIS
     Dosage: 200 MG, INTRAVENOUS
     Route: 042
     Dates: start: 20031001, end: 20031001
  6. ARAVA [Concomitant]
  7. PLAQUENIL [Concomitant]
  8. ELAVIL (LEFLUNOMIDE) [Concomitant]
  9. PLAQUENIL [Concomitant]
  10. ELAVIL [Concomitant]
  11. CELEBREX [Concomitant]
  12. PROVERA [Concomitant]
  13. OGEN (ESTROPIPATE) TABLETS [Concomitant]
  14. GEN-MEDROXY (MEDROXYPROGESTERONE ACETATE) TABLETS [Concomitant]
  15. EMTEC (PANADEINE CO) [Concomitant]
  16. FLEXERIL [Concomitant]

REACTIONS (4)
  - ARTHRALGIA [None]
  - LYMPHADENOPATHY [None]
  - METASTATIC NEOPLASM [None]
  - SQUAMOUS CELL CARCINOMA [None]
